FAERS Safety Report 5893215-7 (Version None)
Quarter: 2008Q3

REPORT INFORMATION
  Report Type: 
  Country: None (occurrence: None)
  Receive Date: 20080923
  Receipt Date: 20070827
  Transmission Date: 20090109
  Serious: No
  Sender: FDA-Public Use
  Company Number: US-ASTRAZENECA-2007UW19246

PATIENT
  Age: 30 Year
  Sex: Female
  Weight: 90 kg

DRUGS (3)
  1. SEROQUEL [Suspect]
     Indication: ANXIETY
     Route: 048
     Dates: start: 20000101
  2. RISPERDAL [Concomitant]
     Indication: MENTAL DISORDER
     Route: 048
     Dates: start: 19970101
  3. ZYPREXA [Concomitant]
     Indication: MENTAL DISORDER
     Route: 048
     Dates: start: 19960101

REACTIONS (2)
  - DIABETES MELLITUS [None]
  - GESTATIONAL DIABETES [None]
